FAERS Safety Report 13183752 (Version 3)
Quarter: 2018Q3

REPORT INFORMATION
  Report Type: Spontaneous
  Country: FR (occurrence: FR)
  Receive Date: 20170203
  Receipt Date: 20180709
  Transmission Date: 20181010
  Serious: Yes (Hospitalization)
  Sender: FDA-Public Use
  Company Number: FR-ACTELION-A-CH2017-149020

PATIENT
  Sex: Female

DRUGS (6)
  1. ADEMPAS [Concomitant]
     Active Substance: RIOCIGUAT
     Dosage: 2 MG, TID
  2. ALDACTONE [Concomitant]
     Active Substance: SPIRONOLACTONE
     Dosage: 25 MG, OD
  3. TRACLEER [Concomitant]
     Active Substance: BOSENTAN
     Indication: PULMONARY ARTERIAL HYPERTENSION
     Dosage: 125 MG, BID
     Route: 048
  4. LASILIX [Concomitant]
     Active Substance: FUROSEMIDE
     Dosage: 40 MG, OD
  5. PREVISCAN (FLUINDIONE) [Concomitant]
     Active Substance: FLUINDIONE
     Dosage: 30 MG, QD
  6. VELETRI [Suspect]
     Active Substance: EPOPROSTENOL
     Indication: PULMONARY ARTERIAL HYPERTENSION
     Dosage: UNK
     Route: 042
     Dates: start: 201507

REACTIONS (11)
  - Systemic infection [Unknown]
  - Sepsis [Unknown]
  - Staphylococcus test positive [Unknown]
  - Pyrexia [Unknown]
  - Catheter management [Unknown]
  - Bacteraemia [Unknown]
  - General physical health deterioration [Unknown]
  - Thrombophlebitis septic [Not Recovered/Not Resolved]
  - Device related infection [Recovered/Resolved]
  - Dyspnoea [Unknown]
  - Cellulitis [Not Recovered/Not Resolved]

NARRATIVE: CASE EVENT DATE: 20161220
